FAERS Safety Report 4625404-3 (Version None)
Quarter: 2005Q2

REPORT INFORMATION
  Report Type: 
  Country: None (occurrence: None)
  Receive Date: 20050401
  Receipt Date: 20050323
  Transmission Date: 20051028
  Serious: Yes (Other)
  Sender: FDA-Public Use
  Company Number: PHFR2005GB01323

PATIENT
  Age: 8 Year
  Sex: Female

DRUGS (1)
  1. TEGRETOL [Suspect]
     Indication: EPILEPSY
     Dosage: 6.5ML/DAY
     Route: 048
     Dates: start: 20020101

REACTIONS (1)
  - APNOEIC ATTACK [None]
